FAERS Safety Report 17194947 (Version 1)
Quarter: 2019Q4

REPORT INFORMATION
  Report Type: Spontaneous
  Country: US (occurrence: US)
  Receive Date: 20191224
  Receipt Date: 20191224
  Transmission Date: 20200122
  Serious: Yes (Hospitalization, Other)
  Sender: FDA-Public Use
  Company Number: NVSC2019US075707

PATIENT
  Age: 61 Year
  Sex: Male

DRUGS (2)
  1. DOXYCYCLINE. [Suspect]
     Active Substance: DOXYCYCLINE
     Indication: PRODUCT USED FOR UNKNOWN INDICATION
     Dosage: UNK
     Route: 065
  2. LEVETIRACETAM. [Suspect]
     Active Substance: LEVETIRACETAM
     Indication: EPILEPSY
     Dosage: UNK
     Route: 065

REACTIONS (8)
  - Diarrhoea [Recovered/Resolved]
  - Weight decreased [Unknown]
  - Clostridium difficile infection [Recovered/Resolved]
  - Middle insomnia [Unknown]
  - Haematochezia [Unknown]
  - Abdominal pain [Unknown]
  - Pseudomembranous colitis [Recovered/Resolved]
  - Pyrexia [Unknown]
